FAERS Safety Report 15437941 (Version 2)
Quarter: 2021Q4

REPORT INFORMATION
  Report Type: Spontaneous
  Country: US (occurrence: US)
  Receive Date: 20180928
  Receipt Date: 20211020
  Transmission Date: 20220303
  Serious: No
  Sender: FDA-Public Use
  Company Number: PHEH2018US039366

PATIENT
  Age: 48 Year
  Sex: Female

DRUGS (1)
  1. CLONAZEPAM [Suspect]
     Active Substance: CLONAZEPAM
     Indication: Anxiety
     Dosage: 1 DF, UNK
     Route: 048

REACTIONS (3)
  - Anxiety [Unknown]
  - Incorrect dose administered [Unknown]
  - Drug ineffective [Unknown]
